FAERS Safety Report 14618805 (Version 1)
Quarter: 2018Q1

REPORT INFORMATION
  Report Type: Spontaneous
  Country: US (occurrence: US)
  Receive Date: 20180309
  Receipt Date: 20180309
  Transmission Date: 20180509
  Serious: No
  Sender: FDA-Public Use
  Company Number: US-LPDUSPRD-20171002

PATIENT
  Sex: Female

DRUGS (5)
  1. L-LYSINE [Concomitant]
     Active Substance: LYSINE
     Route: 065
  2. ESTRADIOL VALERATE INJECTION, USP (0872-05) [Suspect]
     Active Substance: ESTRADIOL VALERATE
     Dosage: 0.2 ML INJECTION
     Route: 051
  3. BIOTIN [Concomitant]
     Active Substance: BIOTIN
     Route: 065
  4. IRON [Concomitant]
     Active Substance: IRON
     Route: 065
  5. MULTIVITAMINS, PLAIN [Concomitant]
     Active Substance: VITAMINS
     Route: 065

REACTIONS (6)
  - Alopecia [Not Recovered/Not Resolved]
  - Arthritis [Not Recovered/Not Resolved]
  - Hyperhidrosis [Not Recovered/Not Resolved]
  - Insomnia [Not Recovered/Not Resolved]
  - Mood swings [Not Recovered/Not Resolved]
  - Arthralgia [Not Recovered/Not Resolved]

NARRATIVE: CASE EVENT DATE: 201703
